FAERS Safety Report 7725363-0 (Version None)
Quarter: 2011Q3

REPORT INFORMATION
  Report Type: 
  Country: None (occurrence: None)
  Receive Date: 20110902
  Receipt Date: 20110824
  Transmission Date: 20111222
  Serious: Yes (Other)
  Sender: FDA-Public Use
  Company Number: JP-JNJFOC-20110810142

PATIENT
  Age: 88 Year
  Sex: Male

DRUGS (12)
  1. FUROSEMIDE [Concomitant]
     Route: 065
  2. BESACOLIN [Concomitant]
     Route: 065
  3. LEVOFLOXACIN [Suspect]
     Indication: PNEUMONIA ASPIRATION
     Route: 065
  4. DIGOXIN [Concomitant]
     Route: 065
  5. GAMOFA [Concomitant]
     Route: 065
  6. SPIRONOLACTONE [Concomitant]
     Route: 065
  7. ASPIRIN [Concomitant]
     Route: 065
  8. TIAPRIM [Concomitant]
     Route: 065
  9. ASPARA K [Concomitant]
     Route: 065
  10. TAMSULOSIN HCL [Concomitant]
     Route: 065
  11. DUTASTERIDE [Concomitant]
     Route: 065
  12. BIOFERMIN [Concomitant]
     Route: 065

REACTIONS (1)
  - MYOCLONUS [None]
